FAERS Safety Report 13860687 (Version 1)
Quarter: 2017Q3

REPORT INFORMATION
  Report Type: Spontaneous
  Country: US (occurrence: US)
  Receive Date: 20170811
  Receipt Date: 20170811
  Transmission Date: 20171127
  Serious: No
  Sender: FDA-Public Use
  Company Number: None

PATIENT
  Age: 74 Year
  Sex: Female
  Weight: 59.02 kg

DRUGS (10)
  1. SPIRIVA [Concomitant]
     Active Substance: TIOTROPIUM BROMIDE MONOHYDRATE
  2. OSTEOCARE [Concomitant]
     Active Substance: CALCIUM\CHOLECALCIFEROL\MAGNESIUM\ZINC
  3. ATENOLOL. [Concomitant]
     Active Substance: ATENOLOL
  4. AMLOPIPINE [Concomitant]
  5. VITAMIN D [Concomitant]
     Active Substance: CHOLECALCIFEROL
  6. SINGULAIR [Concomitant]
     Active Substance: MONTELUKAST SODIUM
  7. DYMISTAR [Concomitant]
  8. FORTEO [Suspect]
     Active Substance: TERIPARATIDE
     Indication: OSTEOPOROTIC FRACTURE
     Dates: start: 201707
  9. LOSARTAN. [Concomitant]
     Active Substance: LOSARTAN
  10. ASPIRN [Concomitant]
     Active Substance: ASPIRIN

REACTIONS (2)
  - Muscle spasms [None]
  - Musculoskeletal disorder [None]

NARRATIVE: CASE EVENT DATE: 201707
